FAERS Safety Report 10286598 (Version 2)
Quarter: 2014Q4

REPORT INFORMATION
  Report Type: Spontaneous
  Country: AE (occurrence: None)
  Receive Date: 20140707
  Receipt Date: 20141112
  Transmission Date: 20150528
  Serious: Yes (Death, Hospitalization)
  Sender: FDA-Public Use
  Company Number: UNT-2014-002947

PATIENT
  Age: 50 Year
  Sex: Female
  Weight: 50 kg

DRUGS (2)
  1. REMODULIN [Suspect]
     Active Substance: TREPROSTINIL
     Indication: PULMONARY ARTERIAL HYPERTENSION
     Route: 042
  2. TRACLEER?/01587701/ (BOSENTAN) [Concomitant]

REACTIONS (2)
  - Hypoxia [None]
  - Pulmonary hypertension [None]

NARRATIVE: CASE EVENT DATE: 20140621
